FAERS Safety Report 7800920-1 (Version None)
Quarter: 2011Q4

REPORT INFORMATION
  Report Type: 
  Country: None (occurrence: None)
  Receive Date: 20111006
  Receipt Date: 20110927
  Transmission Date: 20120403
  Serious: Yes (Other)
  Sender: FDA-Public Use
  Company Number: US-BAYER-2011-025777

PATIENT
  Sex: Male
  Weight: 82.993 kg

DRUGS (38)
  1. OMNISCAN [Suspect]
     Indication: NUCLEAR MAGNETIC RESONANCE IMAGING BRAIN
     Dosage: 20 ML, ONCE
     Dates: start: 20050128, end: 20050128
  2. GADOLINIUM IN UNSPECIFIED DRUG [Suspect]
     Indication: NUCLEAR MAGNETIC RESONANCE IMAGING BRAIN
     Dosage: UNK, ONCE
     Dates: start: 20050808, end: 20050808
  3. LEVOTHROID [Concomitant]
  4. METHOTREXATE [Concomitant]
  5. MAGNEVIST [Suspect]
     Indication: NUCLEAR MAGNETIC RESONANCE IMAGING BRAIN
     Dosage: 20 ML, ONCE
     Route: 042
     Dates: start: 20050617, end: 20050617
  6. OMNISCAN [Suspect]
     Dosage: 20 ML, ONCE
     Dates: start: 20050228, end: 20050228
  7. OMNISCAN [Suspect]
     Dosage: 20 ML, ONCE
     Dates: start: 20050328, end: 20050328
  8. OMNISCAN [Suspect]
     Dosage: 20 ML, ONCE
     Dates: start: 20050425, end: 20050425
  9. GADOLINIUM IN UNSPECIFIED DRUG [Suspect]
     Dosage: UNK, ONCE
     Dates: start: 20060724, end: 20060724
  10. RENVELA [Concomitant]
  11. AMLODIPINE [Concomitant]
  12. VENOFER [Concomitant]
  13. GADOLINIUM IN UNSPECIFIED DRUG [Suspect]
     Dosage: UNK, ONCE
     Dates: start: 20051031, end: 20051031
  14. GADOLINIUM IN UNSPECIFIED DRUG [Suspect]
     Dosage: UNK, ONCE
     Dates: start: 20070604, end: 20070604
  15. GADOLINIUM IN UNSPECIFIED DRUG [Suspect]
     Dosage: UNK, ONCE
     Dates: start: 20070910, end: 20070910
  16. SENSIPAR [Concomitant]
  17. OMNISCAN [Suspect]
     Dosage: 20 ML, ONCE
     Dates: start: 20060422, end: 20060422
  18. GADOLINIUM IN UNSPECIFIED DRUG [Suspect]
     Dosage: UNK, ONCE
     Dates: start: 20061113, end: 20061113
  19. GADOLINIUM IN UNSPECIFIED DRUG [Suspect]
     Dosage: UNK, ONCE
     Dates: start: 20070212, end: 20070212
  20. OMNISCAN [Suspect]
     Indication: NUCLEAR MAGNETIC RESONANCE IMAGING
     Dosage: 20 ML, ONCE
     Dates: start: 20050124, end: 20050124
  21. LOPRESSOR [Concomitant]
  22. MINOXIDIL [Concomitant]
  23. PREDNISONE [Concomitant]
  24. LANTUS [Concomitant]
  25. VASOTEC [Concomitant]
  26. GADOLINIUM IN UNSPECIFIED DRUG [Suspect]
     Dosage: UNK, ONCE
     Dates: start: 20060130, end: 20060130
  27. GADOLINIUM IN UNSPECIFIED DRUG [Suspect]
     Dosage: UNK, ONCE
     Dates: start: 20080324, end: 20080324
  28. MYCOPHENOLATE MOFETIL (CELLCEPT) [Concomitant]
  29. PROGRAF [Concomitant]
  30. EPOGEN [Concomitant]
  31. LASIX [Concomitant]
  32. MAGNEVIST [Suspect]
     Dosage: 15 ML, ONCE
     Route: 042
     Dates: start: 20041112, end: 20041112
  33. PROGRAF [Concomitant]
  34. RENAGEL [Concomitant]
  35. PHOSLO [Concomitant]
  36. NOVOLOG [Concomitant]
  37. ARANESP [Concomitant]
  38. HYDRALAZINE HCL [Concomitant]

REACTIONS (24)
  - SKIN EXFOLIATION [None]
  - GAIT DISTURBANCE [None]
  - PAIN [None]
  - RASH PAPULAR [None]
  - SKIN SWELLING [None]
  - EXTREMITY CONTRACTURE [None]
  - OEDEMA PERIPHERAL [None]
  - PRURITUS GENERALISED [None]
  - DRY SKIN [None]
  - FIBROSIS [None]
  - RASH [None]
  - SKIN HYPERPIGMENTATION [None]
  - PRURITUS [None]
  - NEPHROGENIC SYSTEMIC FIBROSIS [None]
  - SKIN INDURATION [None]
  - SKIN HYPERTROPHY [None]
  - JOINT STIFFNESS [None]
  - MUSCULOSKELETAL STIFFNESS [None]
  - ERYTHEMA [None]
  - SKIN PLAQUE [None]
  - JOINT RANGE OF MOTION DECREASED [None]
  - ARTHRALGIA [None]
  - SKIN TIGHTNESS [None]
  - SKIN FIBROSIS [None]
